FAERS Safety Report 5008826-0 (Version None)
Quarter: 2006Q2

REPORT INFORMATION
  Report Type: 
  Country: None (occurrence: None)
  Receive Date: 20060518
  Receipt Date: 20060510
  Transmission Date: 20061013
  Serious: Yes (Other)
  Sender: FDA-Public Use
  Company Number: HQWYE258810MAY06

PATIENT
  Age: 45 Year
  Sex: Female
  Weight: 99.88 kg

DRUGS (7)
  1. EFFEXOR XR [Suspect]
     Indication: ANXIETY
     Dosage: ^37.5MG/75MG^ ORAL
     Route: 048
  2. EFFEXOR XR [Suspect]
     Indication: MAJOR DEPRESSION
     Dosage: ^37.5MG/75MG^ ORAL
     Route: 048
  3. REBIF [Concomitant]
  4. BENICAR [Concomitant]
  5. HYDROCHLOROTHIAZIDE [Concomitant]
  6. ATENOLOL [Concomitant]
  7. UNSPECIFIED PAIN MEDICATION (UNSPECIFIED PAIN MEDICATION) [Concomitant]

REACTIONS (2)
  - CONDITION AGGRAVATED [None]
  - HYPERTENSION [None]
